FAERS Safety Report 6239744-8 (Version None)
Quarter: 2009Q2

REPORT INFORMATION
  Report Type: 
  Country: None (occurrence: None)
  Receive Date: 20090619
  Receipt Date: 20090608
  Transmission Date: 20091009
  Serious: Yes (Hospitalization)
  Sender: FDA-Public Use
  Company Number: ADR4452009

PATIENT
  Age: 11 Year
  Sex: Female

DRUGS (1)
  1. CIPROFLOXACIN [Suspect]
     Indication: URINARY TRACT INFECTION
     Dosage: 1 DF(1 DAY), ORAL
     Route: 048
     Dates: start: 20080828, end: 20080828

REACTIONS (4)
  - ANAPHYLACTIC REACTION [None]
  - DIARRHOEA [None]
  - GASTROINTESTINAL PAIN [None]
  - URTICARIA [None]
